FAERS Safety Report 5302138-3 (Version None)
Quarter: 2007Q2

REPORT INFORMATION
  Report Type: 
  Country: None (occurrence: None)
  Receive Date: 20070412
  Receipt Date: 20070329
  Transmission Date: 20071010
  Serious: Yes (Hospitalization)
  Sender: FDA-Public Use
  Company Number: 056-C5013-07020601

PATIENT
  Age: 71 Year
  Sex: Female

DRUGS (8)
  1. CC-5013 (LENALIDOMIDE) (CAPSULES) [Suspect]
     Indication: MYELODYSPLASTIC SYNDROME
     Dosage: SEE IMAGE
     Route: 048
     Dates: start: 20070129, end: 20070211
  2. CC-5013 (LENALIDOMIDE) (CAPSULES) [Suspect]
     Indication: MYELODYSPLASTIC SYNDROME
     Dosage: SEE IMAGE
     Route: 048
     Dates: end: 20070212
  3. CC-5013 (LENALIDOMIDE) (CAPSULES) [Suspect]
     Indication: MYELODYSPLASTIC SYNDROME
     Dosage: SEE IMAGE
     Route: 048
     Dates: start: 20070217, end: 20070220
  4. CC-5013 (LENALIDOMIDE) (CAPSULES) [Suspect]
     Indication: MYELODYSPLASTIC SYNDROME
     Dosage: SEE IMAGE
     Route: 048
     Dates: start: 20070310
  5. TRUXORUTINE (TROXERUTIN) [Concomitant]
  6. GLYCEROL (GLYCEROL) (SUPPOSITORY) [Concomitant]
  7. ESOMEPRAZOLE (ESOMEPRAZOLE) [Concomitant]
  8. PIROXICAM [Concomitant]

REACTIONS (4)
  - BACTERIAL CULTURE POSITIVE [None]
  - COLITIS ISCHAEMIC [None]
  - ESCHERICHIA INFECTION [None]
  - INFECTION [None]
